FAERS Safety Report 5745532-9 (Version None)
Quarter: 2008Q2

REPORT INFORMATION
  Report Type: 
  Country: None (occurrence: None)
  Receive Date: 20080519
  Receipt Date: 20080305
  Transmission Date: 20081010
  Serious: No
  Sender: FDA-Public Use
  Company Number: TPA2008A00277

PATIENT
  Age: 12 Year
  Sex: Female
  Weight: 35.3806 kg

DRUGS (3)
  1. ROZEREM [Suspect]
     Indication: INSOMNIA
     Dosage: 8 MG, HS, PER ORAL
     Route: 048
     Dates: start: 20080222, end: 20080303
  2. LORATADINE [Concomitant]
  3. ADVAIR DISKUS 100/50 [Concomitant]

REACTIONS (5)
  - ACTIVITIES OF DAILY LIVING IMPAIRED [None]
  - EUPHORIC MOOD [None]
  - FEELING ABNORMAL [None]
  - HYPERSENSITIVITY [None]
  - LETHARGY [None]
